FAERS Safety Report 10478292 (Version 5)
Quarter: 2015Q1

REPORT INFORMATION
  Report Type: Spontaneous
  Country: US (occurrence: US)
  Receive Date: 20140926
  Receipt Date: 20150212
  Transmission Date: 20150720
  Serious: Yes (Other)
  Sender: FDA-Public Use
  Company Number: US-JNJFOC-20140920959

PATIENT
  Age: 55 Year
  Sex: Male
  Weight: 77.11 kg

DRUGS (2)
  1. SOVALDI [Suspect]
     Active Substance: SOFOSBUVIR
     Indication: HEPATITIS C
     Route: 065
     Dates: start: 20140622
  2. OLYSIO [Suspect]
     Active Substance: SIMEPREVIR
     Indication: HEPATITIS C
     Route: 048
     Dates: start: 20140805

REACTIONS (11)
  - Anxiety [Recovered/Resolved]
  - Throat irritation [Not Recovered/Not Resolved]
  - Panic attack [Recovered/Resolved]
  - Affect lability [Recovered/Resolved]
  - Headache [Recovered/Resolved]
  - Dysphonia [Not Recovered/Not Resolved]
  - Cough [Not Recovered/Not Resolved]
  - Pain [Recovered/Resolved]
  - Off label use [Not Recovered/Not Resolved]
  - Upper-airway cough syndrome [Not Recovered/Not Resolved]
  - Screaming [Recovered/Resolved]

NARRATIVE: CASE EVENT DATE: 2014
